FAERS Safety Report 4759371-9 (Version None)
Quarter: 2005Q3

REPORT INFORMATION
  Report Type: 
  Country: None (occurrence: None)
  Receive Date: 20050831
  Receipt Date: 20050818
  Transmission Date: 20060218
  Serious: Yes (Hospitalization)
  Sender: FDA-Public Use
  Company Number: 192135

PATIENT
  Age: 51 Year
  Sex: Male
  Weight: 129.2752 kg

DRUGS (6)
  1. AVONEX [Suspect]
     Indication: MULTIPLE SCLEROSIS
     Dosage: 30 UG;QW;IM
     Route: 030
     Dates: start: 19960101, end: 20030101
  2. AVONEX [Suspect]
     Indication: MULTIPLE SCLEROSIS
     Dosage: 30 UG;QW;IM
     Route: 030
     Dates: start: 20030101
  3. SENNA [Concomitant]
  4. AMITRIPTYLINE HCL [Concomitant]
  5. DICLOFENAC [Concomitant]
  6. OXYBUTYNIN [Concomitant]

REACTIONS (7)
  - BLADDER DISORDER [None]
  - CONDITION AGGRAVATED [None]
  - CYSTITIS [None]
  - DYSSTASIA [None]
  - KIDNEY INFECTION [None]
  - MULTIPLE SCLEROSIS [None]
  - SEPSIS [None]
